FAERS Safety Report 8549513-1 (Version None)
Quarter: 2012Q3

REPORT INFORMATION
  Report Type: 
  Country: None (occurrence: None)
  Receive Date: 20120730
  Receipt Date: 20120719
  Transmission Date: 20120928
  Serious: Yes (Hospitalization)
  Sender: FDA-Public Use
  Company Number: JP-CELGENEUS-087-50794-12072522

PATIENT
  Sex: Male
  Weight: 52 kg

DRUGS (25)
  1. VIDAZA [Suspect]
     Dosage: 75 MILLIGRAM/SQ. METER
     Route: 058
     Dates: start: 20111205, end: 20111211
  2. PROMACTA [Concomitant]
     Route: 065
     Dates: end: 20120304
  3. KYTRIL [Concomitant]
     Route: 065
     Dates: start: 20111024, end: 20111030
  4. KYTRIL [Concomitant]
     Route: 065
     Dates: start: 20111205, end: 20111211
  5. VOGLIBOSE [Concomitant]
     Route: 065
     Dates: start: 20111125
  6. VIDAZA [Suspect]
     Indication: MYELODYSPLASTIC SYNDROME
     Dosage: 75 MILLIGRAM/SQ. METER
     Route: 058
     Dates: start: 20111024, end: 20111030
  7. LANSOPRAZOLE [Suspect]
     Route: 065
  8. GRAN [Concomitant]
     Route: 065
     Dates: start: 20111023, end: 20111028
  9. GRAN [Concomitant]
     Route: 065
     Dates: start: 20111104, end: 20111125
  10. EXJADE [Concomitant]
     Route: 065
     Dates: start: 20111031
  11. VIDAZA [Suspect]
     Dosage: 75 MILLIGRAM/SQ. METER
     Route: 058
     Dates: start: 20120403, end: 20120411
  12. KYTRIL [Concomitant]
     Route: 065
     Dates: start: 20120111, end: 20120117
  13. KYTRIL [Concomitant]
     Route: 065
     Dates: start: 20120306, end: 20120312
  14. LUINESIN [Concomitant]
     Route: 065
     Dates: start: 20111022, end: 20111028
  15. VIDAZA [Suspect]
     Dosage: 75 MILLIGRAM/SQ. METER
     Route: 058
     Dates: start: 20120306, end: 20120312
  16. KYTRIL [Concomitant]
     Route: 065
     Dates: start: 20120207, end: 20120213
  17. DECADRON [Concomitant]
     Route: 065
     Dates: start: 20111024, end: 20111030
  18. FLUCONAZOLE [Concomitant]
     Route: 065
  19. KYTRIL [Concomitant]
     Route: 065
     Dates: start: 20120403, end: 20120411
  20. VIDAZA [Suspect]
     Dosage: 75 MILLIGRAM/SQ. METER
     Route: 058
     Dates: start: 20120111, end: 20120117
  21. VIDAZA [Suspect]
     Dosage: 75 MILLIGRAM/SQ. METER
     Route: 058
     Dates: start: 20120207, end: 20120213
  22. SITAGLIPTIN PHOSPHATE [Concomitant]
     Route: 065
  23. DECADRON [Concomitant]
     Route: 065
     Dates: start: 20111205, end: 20111211
  24. CEFMETAZOLE [Concomitant]
     Route: 065
     Dates: start: 20111022, end: 20111028
  25. POLAPREZINC [Concomitant]
     Route: 065
     Dates: start: 20120305

REACTIONS (2)
  - INFECTION [None]
  - C-REACTIVE PROTEIN INCREASED [None]
